FAERS Safety Report 8975880 (Version 1)
Quarter: 2012Q4

REPORT INFORMATION
  Report Type: 
  Country: US (occurrence: US)
  Receive Date: 20121219
  Receipt Date: 20121219
  Transmission Date: 20130627
  Serious: Yes (Death, Hospitalization)
  Sender: FDA-Public Use
  Company Number: US-GLAXOSMITHKLINE-A1005565A

PATIENT
  Age: 82 Year
  Sex: Female

DRUGS (1)
  1. VOTRIENT [Suspect]
     Indication: LEIOMYOSARCOMA
     Dosage: 800MG Per day
     Route: 048
     Dates: start: 20120517, end: 20120607

REACTIONS (3)
  - Leiomyosarcoma metastatic [Fatal]
  - Pulmonary embolism [Fatal]
  - Respiratory failure [Fatal]
